FAERS Safety Report 9461818 (Version 2)
Quarter: 2013Q4

REPORT INFORMATION
  Report Type: Spontaneous
  Country: CA (occurrence: CA)
  Receive Date: 20130816
  Receipt Date: 20131024
  Transmission Date: 20140711
  Serious: Yes (Hospitalization)
  Sender: FDA-Public Use
  Company Number: CA-SANOFI-AVENTIS-2013SA081298

PATIENT
  Age: 68 Year
  Sex: Female
  Weight: 114 kg

DRUGS (20)
  1. LASIX [Suspect]
     Indication: FLUID RETENTION
     Route: 065
     Dates: start: 20090715, end: 20090825
  2. RAMIPRIL [Suspect]
     Indication: HYPERTENSION
     Route: 065
     Dates: end: 20121128
  3. CELEBREX [Suspect]
     Indication: PRODUCT USED FOR UNKNOWN INDICATION
     Route: 065
  4. CITALOPRAM [Suspect]
     Indication: DEPRESSION
     Route: 065
  5. INSULIN [Suspect]
     Indication: PRODUCT USED FOR UNKNOWN INDICATION
     Route: 065
  6. LYRICA [Suspect]
     Indication: BACK PAIN
     Route: 065
     Dates: start: 1990, end: 20090825
  7. INVESTIGATIONAL DRUG [Suspect]
     Indication: CARDIOVASCULAR DISORDER
     Route: 048
     Dates: start: 20090520, end: 20090826
  8. INVESTIGATIONAL DRUG [Suspect]
     Indication: CARDIOVASCULAR DISORDER
     Route: 048
     Dates: end: 20111220
  9. ACETAMINOPHEN [Concomitant]
     Dates: start: 20121128
  10. ATORVASTATIN [Concomitant]
  11. BISOPROLOL [Concomitant]
  12. FENOFIBRATE [Concomitant]
  13. LANTUS [Concomitant]
     Dosage: FORM: SOLUTION
     Route: 058
     Dates: start: 20130121
  14. METFORMIN [Concomitant]
  15. METOPROLOL [Concomitant]
  16. OXYCONTIN [Concomitant]
     Dates: start: 20121128
  17. PANTOPRAZOLE [Concomitant]
  18. PERINDOPRIL [Concomitant]
     Dates: start: 20121128
  19. RABEPRAZOLE [Concomitant]
  20. SALBUTAMOL [Concomitant]

REACTIONS (12)
  - Cognitive disorder [Unknown]
  - Depression [Not Recovered/Not Resolved]
  - Nervous system disorder [Recovered/Resolved]
  - Encephalopathy [Recovered/Resolved]
  - Dyskinesia [Recovered/Resolved]
  - Dysarthria [Recovered/Resolved]
  - Myoclonus [Recovered/Resolved]
  - Muscular weakness [Recovered/Resolved]
  - Tremor [Recovered/Resolved]
  - Diabetes mellitus inadequate control [Recovering/Resolving]
  - Hypotension [Recovering/Resolving]
  - Renal failure [Recovered/Resolved]
